FAERS Safety Report 6886227-8 (Version None)
Quarter: 2010Q3

REPORT INFORMATION
  Report Type: 
  Country: None (occurrence: None)
  Receive Date: 20100729
  Receipt Date: 20080229
  Transmission Date: 20110219
  Serious: No
  Sender: FDA-Public Use
  Company Number: US-PFIZER INC-2008002360

PATIENT
  Sex: Female
  Weight: 79.38 kg

DRUGS (7)
  1. ACCUPRIL [Suspect]
     Indication: HYPERTENSION
     Route: 048
     Dates: start: 20040223, end: 20080107
  2. ACCUPRIL [Suspect]
     Indication: CORONARY ARTERY DISEASE
  3. QUINAPRIL [Suspect]
     Indication: HYPERTENSION
     Route: 048
     Dates: start: 20040223
  4. QUINAPRIL [Suspect]
     Indication: CORONARY ARTERY DISEASE
  5. TOPROL-XL [Concomitant]
     Indication: CHRONIC OBSTRUCTIVE PULMONARY DISEASE
  6. PLAVIX [Concomitant]
     Indication: CHRONIC OBSTRUCTIVE PULMONARY DISEASE
  7. SYNTHROID [Concomitant]
     Indication: THYROID DISORDER

REACTIONS (4)
  - ABDOMINAL PAIN [None]
  - COELIAC DISEASE [None]
  - DIARRHOEA [None]
  - NAUSEA [None]
